FAERS Safety Report 24615169 (Version 1)
Quarter: 2024Q4

REPORT INFORMATION
  Report Type: Spontaneous
  Country: SE (occurrence: SE)
  Receive Date: 20241113
  Receipt Date: 20241113
  Transmission Date: 20250114
  Serious: Yes (Other)
  Sender: ANI
  Company Number: SE-ANIPHARMA-2024-SE-000028

PATIENT
  Age: 50 Year
  Sex: Female

DRUGS (1)
  1. CANDESARTAN CILEXETIL [Suspect]
     Active Substance: CANDESARTAN CILEXETIL
     Indication: Product used for unknown indication

REACTIONS (3)
  - Vitreous detachment [Unknown]
  - Muscle spasms [Unknown]
  - Migraine [Unknown]
